FAERS Safety Report 9832979 (Version 2)
Quarter: 2014Q1

REPORT INFORMATION
  Report Type: Spontaneous
  Country: US (occurrence: US)
  Receive Date: 20140121
  Receipt Date: 20140125
  Transmission Date: 20141002
  Serious: Yes (Hospitalization)
  Sender: FDA-Public Use
  Company Number: US-ASTRAZENECA-2014SE02614

PATIENT
  Age: 209 Day
  Sex: Male

DRUGS (1)
  1. SYNAGIS [Suspect]
     Dosage: SYNAGIS 50MG AND SYANGIS100 MG IN MONTHLY
     Route: 030
     Dates: start: 201310

REACTIONS (1)
  - Influenza [Recovered/Resolved]
